FAERS Safety Report 12882110 (Version 1)
Quarter: 2016Q4

REPORT INFORMATION
  Report Type: Report from Study
  Country: CN (occurrence: CN)
  Receive Date: 20161025
  Receipt Date: 20161025
  Transmission Date: 20170207
  Serious: Yes (Other)
  Sender: FDA-Public Use
  Company Number: CN-MYLANLABS-2016M1045626

PATIENT

DRUGS (1)
  1. VINORELBINE [Suspect]
     Active Substance: VINORELBINE\VINORELBINE TARTRATE
     Indication: TRIPLE NEGATIVE BREAST CANCER
     Dosage: ON DAY 1 AND DAY 8
     Route: 065

REACTIONS (2)
  - Neutropenia [Unknown]
  - Gastrointestinal disorder [Unknown]
